FAERS Safety Report 9881272 (Version 1)
Quarter: 2014Q1

REPORT INFORMATION
  Report Type: Spontaneous
  Country: US (occurrence: US)
  Receive Date: 20140207
  Receipt Date: 20140207
  Transmission Date: 20141002
  Serious: Yes (Death, Other)
  Sender: FDA-Public Use
  Company Number: US-NAPPMUNDI-USA-2014-0110900

PATIENT
  Age: 67 Year
  Sex: Male

DRUGS (4)
  1. MORPHINE SULFATE (SIMILAR TO NDA 19-516) [Suspect]
     Indication: PAIN
  2. OXYCODONE HYDROCHLORIDE (SIMILAR TO NDA 22-272) [Suspect]
     Indication: PAIN
     Route: 048
  3. OXYMORPHONE [Suspect]
     Indication: PAIN
  4. VALIUM                             /00017001/ [Concomitant]
     Indication: PRODUCT USED FOR UNKNOWN INDICATION

REACTIONS (4)
  - Overdose [Fatal]
  - Haemoptysis [Unknown]
  - Unresponsive to stimuli [Unknown]
  - Wrong technique in drug usage process [Unknown]
